FAERS Safety Report 6314942-3 (Version None)
Quarter: 2009Q3

REPORT INFORMATION
  Report Type: 
  Country: None (occurrence: None)
  Receive Date: 20090819
  Receipt Date: 20090811
  Transmission Date: 20100115
  Serious: Yes (Hospitalization)
  Sender: FDA-Public Use
  Company Number: A0802697A

PATIENT
  Sex: Female
  Weight: 120 kg

DRUGS (1)
  1. SERETIDE [Suspect]
     Indication: ASTHMA
     Dosage: 1PUFF SEE DOSAGE TEXT
     Dates: start: 20090401

REACTIONS (3)
  - DYSPNOEA [None]
  - OFF LABEL USE [None]
  - OVERDOSE [None]
